FAERS Safety Report 16705565 (Version 1)
Quarter: 2019Q4

REPORT INFORMATION
  Report Type: Spontaneous
  Country: US (occurrence: US)
  Receive Date: 20190814
  Receipt Date: 20190814
  Transmission Date: 20200122
  Serious: No
  Sender: FDA-Public Use
  Company Number: None

PATIENT
  Age: 49 Year
  Sex: Female

DRUGS (1)
  1. BYDUREON [Suspect]
     Active Substance: EXENATIDE
     Indication: DIABETES MELLITUS
     Route: 058
     Dates: start: 20190812

REACTIONS (7)
  - Impaired work ability [None]
  - Nausea [None]
  - Decreased appetite [None]
  - Mood swings [None]
  - Confusional state [None]
  - Hypersomnia [None]
  - Somnolence [None]

NARRATIVE: CASE EVENT DATE: 20190812
